FAERS Safety Report 8446993-7 (Version None)
Quarter: 2012Q2

REPORT INFORMATION
  Report Type: 
  Country: None (occurrence: None)
  Receive Date: 20120612
  Receipt Date: 20120606
  Transmission Date: 20120825
  Serious: Yes (Death, Life-Threatening, Hospitalization, Other)
  Sender: FDA-Public Use
  Company Number: 2010145650

PATIENT
  Age: 69 Year
  Sex: Female

DRUGS (9)
  1. PRESTARIUM A (PERINDOPRIL) [Concomitant]
  2. VITAMIN B12 [Concomitant]
  3. AGEN (AMLODIPINE BESILATE) (AMLODIPINE BESILATE) [Concomitant]
  4. CONCOR COR (BISOPROLOL) [Concomitant]
  5. PROTHAZIN (PROMETHAZINE HYDROCHLORIDE) [Concomitant]
  6. HELICID (OMEPRAZOLE) [Concomitant]
  7. FRAGMIN [Suspect]
     Indication: PROPHYLAXIS
     Dosage: 5000 IU, SINGLE
     Dates: start: 20101020
  8. PERINDOPRIL ARGININE [Concomitant]
  9. CIPROFLOXACIN [Concomitant]

REACTIONS (2)
  - MULTI-ORGAN FAILURE [None]
  - PULMONARY EMBOLISM [None]
